FAERS Safety Report 12683271 (Version 1)
Quarter: 2016Q3

REPORT INFORMATION
  Report Type: Spontaneous
  Country: US (occurrence: US)
  Receive Date: 20160825
  Receipt Date: 20160825
  Transmission Date: 20161109
  Serious: No
  Sender: FDA-Public Use
  Company Number: US-PFIZER INC-2016389547

PATIENT
  Sex: Female

DRUGS (2)
  1. ALAVERT ALLERGY [Suspect]
     Active Substance: LORATADINE
     Dosage: UNK
  2. GLUTEN [Suspect]
     Active Substance: WHEAT GLUTEN

REACTIONS (3)
  - Lip swelling [Unknown]
  - Blister [Unknown]
  - Gluten sensitivity [Unknown]
